FAERS Safety Report 25312873 (Version 3)
Quarter: 2025Q3

REPORT INFORMATION
  Report Type: Other
  Country: US (occurrence: US)
  Receive Date: 20250514
  Receipt Date: 20250917
  Transmission Date: 20251020
  Serious: No
  Sender: TRAVERE THERAPEUTICS
  Company Number: US-TRAVERE-2025TVT00623

PATIENT
  Age: 54 Year
  Sex: Male

DRUGS (5)
  1. FILSPARI [Suspect]
     Active Substance: SPARSENTAN
     Indication: IgA nephropathy
     Route: 048
     Dates: start: 20250417
  2. FILSPARI [Suspect]
     Active Substance: SPARSENTAN
     Route: 048
     Dates: start: 20250625
  3. CLONIDINE [Concomitant]
     Active Substance: CLONIDINE
  4. MYCOPHENOLIC ACID [Concomitant]
     Active Substance: MYCOPHENOLIC ACID
  5. CARVEDILOL [Concomitant]
     Active Substance: CARVEDILOL

REACTIONS (12)
  - Swelling [None]
  - Asthenia [None]
  - Fatigue [None]
  - Dyspnoea [None]
  - Mobility decreased [None]
  - Lethargy [None]
  - Abdominal distension [None]
  - Constipation [None]
  - Thirst [None]
  - Dehydration [None]
  - Feeling abnormal [Unknown]
  - Off label use [Unknown]
